FAERS Safety Report 12558505 (Version 1)
Quarter: 2016Q3

REPORT INFORMATION
  Report Type: Spontaneous
  Country: US (occurrence: US)
  Receive Date: 20160714
  Receipt Date: 20160714
  Transmission Date: 20161109
  Serious: No
  Sender: FDA-Public Use
  Company Number: US-009507513-1607USA003022

PATIENT
  Sex: Male

DRUGS (1)
  1. ZEPATIER [Suspect]
     Active Substance: ELBASVIR\GRAZOPREVIR
     Indication: HEPATITIS C
     Dosage: ONCE A DAY
     Route: 061
     Dates: start: 20160622

REACTIONS (3)
  - Product use issue [Unknown]
  - Skin exfoliation [Unknown]
  - Blister [Unknown]

NARRATIVE: CASE EVENT DATE: 2016
